FAERS Safety Report 9822657 (Version 2)
Quarter: 2014Q1

REPORT INFORMATION
  Report Type: Spontaneous
  Country: US (occurrence: US)
  Receive Date: 20140116
  Receipt Date: 20140313
  Transmission Date: 20141002
  Serious: No
  Sender: FDA-Public Use
  Company Number: US-BIOGENIDEC-2014BI004192

PATIENT
  Age: 26 Year
  Sex: Female

DRUGS (2)
  1. TYSABRI [Suspect]
     Indication: MULTIPLE SCLEROSIS
     Route: 042
     Dates: start: 20111220
  2. BENADRYL [Concomitant]
     Indication: PREMEDICATION

REACTIONS (2)
  - Sinusitis [Recovered/Resolved with Sequelae]
  - Fatigue [Recovered/Resolved]
